FAERS Safety Report 8836940 (Version 3)
Quarter: 2013Q1

REPORT INFORMATION
  Report Type: Report from Study
  Country: US (occurrence: US)
  Receive Date: 20121012
  Receipt Date: 20130305
  Transmission Date: 20140127
  Serious: Yes (Hospitalization, Other)
  Sender: FDA-Public Use
  Company Number: US-ACTELION-A-US2012-72437

PATIENT
  Age: 73 Year
  Sex: Female

DRUGS (3)
  1. VELETRI [Suspect]
     Indication: PULMONARY ARTERIAL HYPERTENSION
     Dosage: 10 NG/KG, PER MIN
     Route: 042
     Dates: start: 20111108
  2. SILDENAFIL [Concomitant]
  3. ASPIRIN [Concomitant]

REACTIONS (9)
  - Adverse reaction [Unknown]
  - Pneumonia [Unknown]
  - Product quality issue [Unknown]
  - Insomnia [Unknown]
  - Dyspnoea [Unknown]
  - Rash [Unknown]
  - Contusion [Unknown]
  - Asthenia [Unknown]
  - Malaise [Unknown]
